FAERS Safety Report 14224059 (Version 1)
Quarter: 2017Q4

REPORT INFORMATION
  Report Type: Spontaneous
  Country: US (occurrence: US)
  Receive Date: 20171124
  Receipt Date: 20171124
  Transmission Date: 20180321
  Serious: Yes (Disabling, Other)
  Sender: FDA-Public Use
  Company Number: None

PATIENT
  Age: 41 Year
  Sex: Female

DRUGS (2)
  1. MANNITOL. [Suspect]
     Active Substance: MANNITOL
     Indication: BRAIN OEDEMA
     Route: 042
     Dates: start: 20150715, end: 20150716
  2. MANNITOL. [Suspect]
     Active Substance: MANNITOL
     Indication: SPINAL FUSION SURGERY
     Route: 042
     Dates: start: 20150715, end: 20150716

REACTIONS (3)
  - Vascular injury [None]
  - Peripheral swelling [None]
  - Pain [None]

NARRATIVE: CASE EVENT DATE: 20150715
